FAERS Safety Report 8666345 (Version 2)
Quarter: 2012Q4

REPORT INFORMATION
  Report Type: 
  Country: US (occurrence: US)
  Receive Date: 20120716
  Receipt Date: 20121019
  Transmission Date: 20130627
  Serious: Yes (Other)
  Sender: FDA-Public Use
  Company Number: US-ROCHE-1087417

PATIENT
  Age: 67 Year
  Sex: Female

DRUGS (4)
  1. BONIVA [Suspect]
     Indication: OSTEOPOROSIS
     Route: 048
     Dates: start: 20060726, end: 200903
  2. FOSAMAX [Suspect]
     Indication: OSTEOPOROSIS
     Route: 048
     Dates: start: 199712, end: 200009
  3. FOSAMAX [Suspect]
     Route: 048
     Dates: start: 20030203, end: 201009
  4. FOSAMAX [Suspect]
     Route: 048
     Dates: end: 20101005

REACTIONS (3)
  - Femur fracture [Unknown]
  - Emotional distress [Unknown]
  - Depression [Unknown]
